FAERS Safety Report 9735824 (Version 1)
Quarter: 2013Q4

REPORT INFORMATION
  Report Type: Spontaneous
  Country: US (occurrence: None)
  Receive Date: 20131204
  Receipt Date: 20131204
  Transmission Date: 20140711
  Serious: Yes (Other)
  Sender: FDA-Public Use
  Company Number: 2036561

PATIENT
  Age: 77 Year
  Sex: Female
  Weight: 65.77 kg

DRUGS (2)
  1. DEMEROL [Suspect]
     Indication: THERAPEUTIC PROCEDURE
     Route: 042
     Dates: start: 20131111, end: 20131111
  2. VERSED [Suspect]
     Indication: PRODUCT USED FOR UNKNOWN INDICATION
     Dates: start: 20131111

REACTIONS (2)
  - Oxygen saturation decreased [None]
  - Unresponsive to stimuli [None]
